FAERS Safety Report 9237123 (Version 1)
Quarter: 2013Q2

REPORT INFORMATION
  Report Type: Spontaneous
  Country: US (occurrence: US)
  Receive Date: 20130417
  Receipt Date: 20130417
  Transmission Date: 20140414
  Serious: No
  Sender: FDA-Public Use
  Company Number: US-009507513-1304USA006124

PATIENT
  Age: 5 Year
  Sex: Male

DRUGS (3)
  1. CLARITIN ORAL SOLUTION [Suspect]
     Indication: HYPERSENSITIVITY
     Dosage: 5 MG, BID
     Route: 048
     Dates: start: 20130321
  2. CLARITIN ORAL SOLUTION [Suspect]
     Indication: RHINORRHOEA
     Dosage: 5 MG, PRN
     Route: 048
  3. CLARITIN ORAL SOLUTION [Suspect]
     Indication: SNEEZING

REACTIONS (2)
  - Accidental overdose [Unknown]
  - No adverse event [Unknown]
